FAERS Safety Report 14666191 (Version 1)
Quarter: 2018Q1

REPORT INFORMATION
  Report Type: Spontaneous
  Country: US (occurrence: US)
  Receive Date: 20180321
  Receipt Date: 20180321
  Transmission Date: 20180509
  Serious: No
  Sender: FDA-Public Use
  Company Number: US-ELI_LILLY_AND_COMPANY-US201803006701

PATIENT
  Sex: Male

DRUGS (1)
  1. BASAGLAR [Suspect]
     Active Substance: INSULIN GLARGINE
     Indication: PRODUCT USED FOR UNKNOWN INDICATION
     Dosage: 80 U, DAILY
     Route: 065

REACTIONS (10)
  - Neuropathy peripheral [Unknown]
  - Confusional state [Unknown]
  - Feeling abnormal [Unknown]
  - Blood glucose increased [Unknown]
  - Dizziness [Unknown]
  - Asthenia [Unknown]
  - Burning sensation [Unknown]
  - Dyskinesia [Unknown]
  - Muscle spasms [Unknown]
  - Head titubation [Unknown]

NARRATIVE: CASE EVENT DATE: 20180313
